FAERS Safety Report 4513032-X (Version None)
Quarter: 2004Q4

REPORT INFORMATION
  Report Type: 
  Country: None (occurrence: None)
  Receive Date: 20041130
  Receipt Date: 20041123
  Transmission Date: 20050328
  Serious: Yes (Hospitalization)
  Sender: FDA-Public Use
  Company Number: US-JNJFOC-20041106009

PATIENT
  Age: 56 Year
  Sex: Male

DRUGS (15)
  1. DURAGESIC [Suspect]
     Route: 062
     Dates: start: 20040701, end: 20041115
  2. GLYBURIDE [Concomitant]
     Route: 049
  3. METFORMIN HCL [Concomitant]
     Route: 049
  4. XANAX [Concomitant]
     Indication: ANXIETY
     Route: 049
  5. DULCOLAX [Concomitant]
     Route: 054
  6. THORAZINE [Concomitant]
     Indication: DRUG USE FOR UNKNOWN INDICATION
     Route: 049
  7. FELODIPINE [Concomitant]
     Indication: BLOOD PRESSURE
     Route: 049
  8. REMERON [Concomitant]
     Indication: SLEEP DISORDER THERAPY
     Route: 049
  9. METOPROLOL [Concomitant]
     Indication: BLOOD PRESSURE
     Route: 049
  10. LISINOPRIL [Concomitant]
     Indication: BLOOD PRESSURE
     Route: 049
  11. CARBENIZAPINE [Concomitant]
     Route: 049
  12. TERAZOSIN HCL [Concomitant]
     Route: 049
  13. ACIPHEX [Concomitant]
     Route: 049
  14. DARVOCET [Concomitant]
     Route: 049
  15. DARVOCET [Concomitant]
     Indication: PAIN
     Route: 049

REACTIONS (4)
  - DRUG WITHDRAWAL SYNDROME [None]
  - FAECAL INCONTINENCE [None]
  - INSOMNIA [None]
  - URINARY INCONTINENCE [None]
